FAERS Safety Report 5287837-4 (Version None)
Quarter: 2007Q1

REPORT INFORMATION
  Report Type: 
  Country: None (occurrence: None)
  Receive Date: 20070112
  Receipt Date: 20060417
  Transmission Date: 20070707
  Serious: Yes (Other)
  Sender: FDA-Public Use
  Company Number: PHEH2006US05003

PATIENT
  Age: 11 Year
  Sex: Male

DRUGS (1)
  1. FOCALIN [Suspect]
     Indication: ATTENTION DEFICIT/HYPERACTIVITY DISORDER
     Dosage: 20 MG,QD,ORAL
     Route: 048
     Dates: start: 20060409, end: 20060415

REACTIONS (2)
  - AGITATION [None]
  - PSYCHOTIC DISORDER [None]
